FAERS Safety Report 4688091-4 (Version None)
Quarter: 2005Q2

REPORT INFORMATION
  Report Type: 
  Country: None (occurrence: None)
  Receive Date: 20050610
  Receipt Date: 20050603
  Transmission Date: 20051028
  Serious: Yes (Hospitalization)
  Sender: FDA-Public Use
  Company Number: US-ROCHE-406922

PATIENT
  Age: 42 Year
  Sex: Female

DRUGS (3)
  1. PEGASYS [Suspect]
     Route: 058
     Dates: start: 20050103
  2. COPEGUS [Suspect]
     Route: 048
     Dates: start: 20050103
  3. ACIPHEX [Concomitant]
     Route: 048

REACTIONS (4)
  - CHEST PAIN [None]
  - DEEP VEIN THROMBOSIS [None]
  - DEPRESSION [None]
  - DYSPNOEA [None]
